FAERS Safety Report 8395347-0 (Version None)
Quarter: 2012Q2

REPORT INFORMATION
  Report Type: 
  Country: None (occurrence: None)
  Receive Date: 20120530
  Receipt Date: 20120522
  Transmission Date: 20120825
  Serious: Yes (Death, Life-Threatening, Other)
  Sender: FDA-Public Use
  Company Number: FR-PFIZER INC-2012128813

PATIENT
  Age: 44 Year
  Sex: Female

DRUGS (3)
  1. ASPEGIC 1000 [Concomitant]
     Indication: CEREBROVASCULAR ACCIDENT
     Dosage: 1 DF, 1X/DAY
     Dates: start: 20120507
  2. ORGARAN [Concomitant]
     Indication: ANTICOAGULANT THERAPY
     Dosage: 1 DF, 2X/DAY
     Dates: start: 20080101, end: 20120503
  3. ARGATROBAN [Suspect]
     Indication: ANTICOAGULANT THERAPY
     Dosage: 2.4 ML/HR
     Route: 042
     Dates: start: 20120504, end: 20120505

REACTIONS (1)
  - SPLENIC HAEMORRHAGE [None]
